FAERS Safety Report 11628331 (Version 1)
Quarter: 2015Q4

REPORT INFORMATION
  Report Type: Spontaneous
  Country: US (occurrence: None)
  Receive Date: 20151013
  Receipt Date: 20151013
  Transmission Date: 20160304
  Serious: No
  Sender: FDA-Public Use
  Company Number: None

PATIENT
  Age: 72 Year
  Weight: 89.81 kg

DRUGS (5)
  1. CENTRUM MULTI VITAMIN [Concomitant]
  2. PREVACID [Concomitant]
     Active Substance: LANSOPRAZOLE
  3. SYNTHROID [Concomitant]
     Active Substance: LEVOTHYROXINE SODIUM
  4. ASPIRIN. [Concomitant]
     Active Substance: ASPIRIN
  5. JUBLIA [Suspect]
     Active Substance: EFINACONAZOLE
     Indication: ONYCHOMYCOSIS
     Dosage: APPLIED TO A SURFACE, USUALLY THE SKIN
     Dates: start: 20151009

REACTIONS (6)
  - Erythema [None]
  - Skin irritation [None]
  - Skin disorder [None]
  - Skin burning sensation [None]
  - Blister rupture [None]
  - Hyperaesthesia [None]

NARRATIVE: CASE EVENT DATE: 20151009
